FAERS Safety Report 16235174 (Version 1)
Quarter: 2019Q2

REPORT INFORMATION
  Report Type: Spontaneous
  Country: FR (occurrence: FR)
  Receive Date: 20190424
  Receipt Date: 20190424
  Transmission Date: 20190711
  Serious: Yes (Other)
  Sender: FDA-Public Use
  Company Number: FR-PFIZER INC-2019065676

PATIENT
  Sex: Female
  Weight: 3.66 kg

DRUGS (1)
  1. ZOLOFT [Suspect]
     Active Substance: SERTRALINE HYDROCHLORIDE
     Dosage: 50 MG, 2X/DAY
     Route: 064
     Dates: start: 201108

REACTIONS (2)
  - Neonatal hypoxia [Recovered/Resolved]
  - Maternal exposure during pregnancy [Recovered/Resolved]
